FAERS Safety Report 15327362 (Version 1)
Quarter: 2018Q3

REPORT INFORMATION
  Report Type: Spontaneous
  Country: US (occurrence: US)
  Receive Date: 20180823
  Receipt Date: 20180823
  Transmission Date: 20181010
  Serious: Yes (Hospitalization)
  Sender: FDA-Public Use
  Company Number: None

PATIENT
  Age: 70 Year
  Sex: Female
  Weight: 60 kg

DRUGS (12)
  1. ASPIRIN. [Suspect]
     Active Substance: ASPIRIN
  2. FLUTICASONE. [Concomitant]
     Active Substance: FLUTICASONE
  3. HARVONI [Suspect]
     Active Substance: LEDIPASVIR\SOFOSBUVIR
     Indication: HEPATITIS C
     Route: 048
     Dates: start: 20180421
  4. ACETAMINOPHEN. [Concomitant]
     Active Substance: ACETAMINOPHEN
  5. GABAPENTIN. [Concomitant]
     Active Substance: GABAPENTIN
  6. LOSARTAN. [Concomitant]
     Active Substance: LOSARTAN
  7. ALBUTEROL. [Concomitant]
     Active Substance: ALBUTEROL
  8. FORMOTEROL [Concomitant]
     Active Substance: FORMOTEROL
  9. BUDESONIDE. [Concomitant]
     Active Substance: BUDESONIDE
  10. COREG [Concomitant]
     Active Substance: CARVEDILOL
  11. DOCUSATE SODIUM. [Concomitant]
     Active Substance: DOCUSATE SODIUM
  12. LATANOPROST. [Concomitant]
     Active Substance: LATANOPROST

REACTIONS (3)
  - Pain in extremity [None]
  - Peripheral ischaemia [None]
  - Burning sensation [None]

NARRATIVE: CASE EVENT DATE: 20180806
